FAERS Safety Report 17185097 (Version 3)
Quarter: 2020Q3

REPORT INFORMATION
  Report Type: Spontaneous
  Country: US (occurrence: US)
  Receive Date: 20191220
  Receipt Date: 20200817
  Transmission Date: 20201102
  Serious: No
  Sender: FDA-Public Use
  Company Number: US-PHARMING-PHAUS2019000692

PATIENT

DRUGS (2)
  1. RUCONEST [Suspect]
     Active Substance: HUMAN C1-ESTERASE INHIBITOR
     Indication: HEREDITARY ANGIOEDEMA WITH C1 ESTERASE INHIBITOR DEFICIENCY
     Dosage: EVERY 3 DAYS
     Route: 042
     Dates: start: 201701
  2. RUCONEST [Suspect]
     Active Substance: HUMAN C1-ESTERASE INHIBITOR
     Dosage: UNK, EVERY THREE?FOUR DAYS
     Route: 042
     Dates: start: 201701

REACTIONS (2)
  - Intentional product use issue [Unknown]
  - Feeling abnormal [Recovering/Resolving]
